FAERS Safety Report 6097309-5 (Version None)
Quarter: 2009Q1

REPORT INFORMATION
  Report Type: 
  Country: None (occurrence: None)
  Receive Date: 20090227
  Receipt Date: 20090224
  Transmission Date: 20090719
  Serious: Yes (Death)
  Sender: FDA-Public Use
  Company Number: JP-ELI_LILLY_AND_COMPANY-JP200902004961

PATIENT
  Sex: Male
  Weight: 41.1 kg

DRUGS (16)
  1. PEMETREXED [Suspect]
     Indication: PLEURAL MESOTHELIOMA MALIGNANT RECURRENT
     Dosage: 650 MG, OTHER
     Route: 042
     Dates: start: 20080516, end: 20080606
  2. PEMETREXED [Suspect]
     Dosage: 500 MG, OTHER
     Route: 042
     Dates: start: 20080627, end: 20080627
  3. CISPLATIN [Suspect]
     Indication: PLEURAL MESOTHELIOMA MALIGNANT RECURRENT
     Dosage: 100 MG, OTHER
     Route: 042
     Dates: start: 20080516, end: 20080606
  4. CISPLATIN [Suspect]
     Dosage: 80 MG, OTHER
     Route: 042
     Dates: start: 20080627, end: 20080627
  5. PANVITAN [Concomitant]
     Dosage: 1 G, DAILY (1/D)
     Route: 048
     Dates: start: 20080502, end: 20080714
  6. CYANOCOBALAMIN [Concomitant]
     Dosage: 1 MG, OTHER
     Route: 030
     Dates: start: 20080508, end: 20080508
  7. CYANOCOBALAMIN [Concomitant]
     Dosage: 1 MG, OTHER
     Route: 030
     Dates: start: 20080718, end: 20080718
  8. PREDNISOLONE [Concomitant]
     Dosage: 10 MG, DAILY (1/D)
     Route: 048
  9. KYTRIL [Concomitant]
     Indication: PROPHYLAXIS
     Dosage: 3 MG, OTHER
     Route: 042
     Dates: start: 20080516, end: 20080627
  10. DECADRON [Concomitant]
     Indication: PROPHYLAXIS
     Dosage: 8 MG, OTHER
     Route: 042
     Dates: start: 20080516, end: 20080627
  11. NAVOBAN [Concomitant]
     Indication: PROPHYLAXIS
     Dosage: 5 MG, DAILY (1/D)
     Route: 048
     Dates: start: 20080517, end: 20080520
  12. NAVOBAN [Concomitant]
     Dosage: 5 MG, DAILY (1/D)
     Route: 048
     Dates: start: 20080607, end: 20080611
  13. NAVOBAN [Concomitant]
     Dosage: 5 MG, DAILY (1/D)
     Route: 048
     Dates: start: 20080628, end: 20080702
  14. TAKEPRON [Concomitant]
     Dosage: 15 MG, UNK
     Route: 048
     Dates: start: 20080527
  15. PEON [Concomitant]
     Dosage: 240 MG, UNK
     Route: 048
     Dates: start: 20080530
  16. RHEUMATREX [Concomitant]
     Indication: MUSCULOSKELETAL PAIN
     Dates: end: 20080916

REACTIONS (1)
  - DEATH [None]
